FAERS Safety Report 13456938 (Version 2)
Quarter: 2017Q2

REPORT INFORMATION
  Report Type: Spontaneous
  Country: JP (occurrence: JP)
  Receive Date: 20170419
  Receipt Date: 20170428
  Transmission Date: 20170830
  Serious: Yes (Hospitalization, Other)
  Sender: FDA-Public Use
  Company Number: JP-PFIZER INC-2017170833

PATIENT
  Age: 12 Year
  Sex: Female

DRUGS (8)
  1. VINCRISTINE SULFATE. [Suspect]
     Active Substance: VINCRISTINE SULFATE
     Indication: UNDIFFERENTIATED SARCOMA
     Route: 042
  2. MELPHALAN. [Suspect]
     Active Substance: MELPHALAN
     Indication: UNDIFFERENTIATED SARCOMA
  3. IFOSFAMIDE. [Suspect]
     Active Substance: IFOSFAMIDE
     Indication: UNDIFFERENTIATED SARCOMA
     Route: 041
  4. ETOPOSIDE. [Suspect]
     Active Substance: ETOPOSIDE
     Indication: UNDIFFERENTIATED SARCOMA
     Route: 041
  5. BUSULFAN. [Suspect]
     Active Substance: BUSULFAN
  6. THIOTEPA. [Suspect]
     Active Substance: THIOTEPA
     Indication: UNDIFFERENTIATED SARCOMA
  7. CYCLOPHOSPHAMIDE HYDRATE [Suspect]
     Active Substance: CYCLOPHOSPHAMIDE
     Indication: UNDIFFERENTIATED SARCOMA
     Route: 041
  8. ADRIACIN [Suspect]
     Active Substance: DOXORUBICIN HYDROCHLORIDE
     Indication: UNDIFFERENTIATED SARCOMA
     Dosage: UNK
     Route: 041

REACTIONS (2)
  - Follicular thyroid cancer [Recovering/Resolving]
  - Second primary malignancy [Recovering/Resolving]
